FAERS Safety Report 25503108 (Version 7)
Quarter: 2025Q4

REPORT INFORMATION
  Report Type: Spontaneous
  Country: BR (occurrence: BR)
  Receive Date: 20250702
  Receipt Date: 20251029
  Transmission Date: 20260118
  Serious: Yes (Hospitalization, Other)
  Sender: SANDOZ
  Company Number: BR-002147023-NVSC2025BR103623

PATIENT
  Sex: Female

DRUGS (3)
  1. FULVESTRANT [Suspect]
     Active Substance: FULVESTRANT
     Indication: Product used for unknown indication
     Dosage: UNK
     Route: 065
  2. KISQALI [Suspect]
     Active Substance: RIBOCICLIB SUCCINATE
     Indication: Breast cancer female
     Dosage: UNK
     Route: 065
     Dates: start: 2023
  3. KISQALI [Suspect]
     Active Substance: RIBOCICLIB SUCCINATE
     Indication: Breast cancer metastatic
     Dosage: 2 DOSAGE FORM, QD, WITH PAUSE OF 7 DAYS, 3 YEARS AGO
     Route: 065

REACTIONS (17)
  - Nail fold inflammation [Unknown]
  - Ulcer [Unknown]
  - Oesophagitis [Unknown]
  - Onychalgia [Unknown]
  - Hiatus hernia [Unknown]
  - Decreased immune responsiveness [Unknown]
  - Malaise [Unknown]
  - Asthenia [Unknown]
  - Vomiting [Unknown]
  - Nail disorder [Recovering/Resolving]
  - Inflammation [Recovering/Resolving]
  - Onychomadesis [Recovering/Resolving]
  - Miliaria [Recovering/Resolving]
  - Pain [Unknown]
  - Peripheral swelling [Recovering/Resolving]
  - Hyperhidrosis [Unknown]
  - Dry skin [Recovering/Resolving]
